FAERS Safety Report 18756059 (Version 1)
Quarter: 2021Q1

REPORT INFORMATION
  Report Type: Spontaneous
  Country: US (occurrence: US)
  Receive Date: 20210119
  Receipt Date: 20210119
  Transmission Date: 20210419
  Serious: Yes (Other)
  Sender: FDA-Public Use
  Company Number: US-BAUSCH-BL-2021-000418

PATIENT
  Age: 62 Year
  Sex: Female
  Weight: 63.56 kg

DRUGS (9)
  1. VITAMIN B12 [Concomitant]
     Active Substance: CYANOCOBALAMIN
     Indication: PRODUCT USED FOR UNKNOWN INDICATION
     Route: 048
  2. VITAMIN D3 [Concomitant]
     Active Substance: CHOLECALCIFEROL
     Indication: PRODUCT USED FOR UNKNOWN INDICATION
     Route: 048
  3. TRANXENE [Concomitant]
     Active Substance: CLORAZEPATE DIPOTASSIUM
     Indication: PRODUCT USED FOR UNKNOWN INDICATION
     Route: 048
  4. LEXAPRO [Concomitant]
     Active Substance: ESCITALOPRAM OXALATE
     Indication: PRODUCT USED FOR UNKNOWN INDICATION
     Route: 048
  5. AIMOVIG [Concomitant]
     Active Substance: ERENUMAB-AOOE
     Indication: PRODUCT USED FOR UNKNOWN INDICATION
  6. DIHYDROERGOTAMINE MESYLATE. [Suspect]
     Active Substance: DIHYDROERGOTAMINE MESYLATE
     Indication: MIGRAINE
     Dosage: STARTED 1 TO 2 YEARS PRIOR TO THE DATE OF THIS REPORT. 1 SPRAY IN EACH NOSTRIL
     Route: 045
  7. SYNTHROID [Concomitant]
     Active Substance: LEVOTHYROXINE SODIUM
     Indication: PRODUCT USED FOR UNKNOWN INDICATION
     Route: 048
  8. ALLEGRA [Concomitant]
     Active Substance: FEXOFENADINE HYDROCHLORIDE
     Indication: PRODUCT USED FOR UNKNOWN INDICATION
     Route: 048
  9. VITAMIN C [Concomitant]
     Active Substance: ASCORBIC ACID
     Indication: PRODUCT USED FOR UNKNOWN INDICATION
     Route: 048

REACTIONS (5)
  - Seizure [Recovered/Resolved]
  - Mitral valve incompetence [Unknown]
  - Dyspnoea [Not Recovered/Not Resolved]
  - Central nervous system lesion [Recovered/Resolved]
  - Dizziness [Recovered/Resolved]

NARRATIVE: CASE EVENT DATE: 20200716
